FAERS Safety Report 24410048 (Version 1)
Quarter: 2024Q4

REPORT INFORMATION
  Report Type: Report from Study
  Country: US (occurrence: US)
  Receive Date: 20241008
  Receipt Date: 20241008
  Transmission Date: 20250115
  Serious: Yes (Death)
  Sender: ROCHE
  Company Number: US-ROCHE-10000098905

PATIENT

DRUGS (5)
  1. MYCOPHENOLATE MOFETIL [Suspect]
     Active Substance: MYCOPHENOLATE MOFETIL
     Indication: Prophylaxis against graft versus host disease
     Route: 065
  2. CYCLOPHOSPHAMIDE [Suspect]
     Active Substance: CYCLOPHOSPHAMIDE
     Indication: Prophylaxis against graft versus host disease
     Dosage: 50 MG/KG/DAY ON DAYS 3 AND 4 POST-HCT
     Route: 065
  3. TACROLIMUS [Suspect]
     Active Substance: TACROLIMUS
     Indication: Prophylaxis against graft versus host disease
     Dosage: 1MG STARTING ON DAY 5 AND WAS TAPERED STARTING ON DAY 90 IN PATIENTS
     Route: 065
  4. SIROLIMUS [Suspect]
     Active Substance: SIROLIMUS
     Indication: Prophylaxis against graft versus host disease
     Dosage: 5 TO 10 NG/ML
     Route: 065
  5. FLUDARABINE [Suspect]
     Active Substance: FLUDARABINE PHOSPHATE
     Indication: Prophylaxis against transplant rejection
     Dosage: 30MG/M2 FOR 3DAYS (DAYS-7TO-5PRE-HCT)
     Route: 065

REACTIONS (6)
  - Infection [Fatal]
  - Hepatitis B [Fatal]
  - Acute hepatic failure [Fatal]
  - Venoocclusive disease [Fatal]
  - Venoocclusive liver disease [Fatal]
  - Myelodysplastic syndrome [Fatal]
